FAERS Safety Report 9706237 (Version 1)
Quarter: 2013Q4

REPORT INFORMATION
  Report Type: Spontaneous
  Country: US (occurrence: US)
  Receive Date: 20131125
  Receipt Date: 20131125
  Transmission Date: 20140711
  Serious: Yes (Other)
  Sender: FDA-Public Use
  Company Number: US-AMGEN-USASP2013082427

PATIENT
  Age: 60 Year
  Sex: Female

DRUGS (1)
  1. EPOGEN [Suspect]
     Indication: RENAL FAILURE CHRONIC
     Dosage: 20000 UNIT, UNK
     Route: 065

REACTIONS (2)
  - Anaemia [Not Recovered/Not Resolved]
  - Aplasia pure red cell [Unknown]
